FAERS Safety Report 9001679 (Version 11)
Quarter: 2017Q1

REPORT INFORMATION
  Report Type: Report from Study
  Country: CA (occurrence: CA)
  Receive Date: 20130107
  Receipt Date: 20170208
  Transmission Date: 20170429
  Serious: Yes (Other)
  Sender: FDA-Public Use
  Company Number: PHHY2011CA53592

PATIENT
  Age: 87 Year
  Sex: Female

DRUGS (13)
  1. ATENOLOL. [Concomitant]
     Active Substance: ATENOLOL
     Indication: PRODUCT USED FOR UNKNOWN INDICATION
     Route: 065
  2. AMLODIPINE [Concomitant]
     Active Substance: AMLODIPINE BESYLATE
     Indication: PRODUCT USED FOR UNKNOWN INDICATION
     Route: 065
  3. SYNTHROID [Concomitant]
     Active Substance: LEVOTHYROXINE SODIUM
     Indication: PRODUCT USED FOR UNKNOWN INDICATION
     Route: 065
  4. CALCIVIT D [Concomitant]
     Indication: PRODUCT USED FOR UNKNOWN INDICATION
     Route: 065
  5. TASIGNA [Suspect]
     Active Substance: NILOTINIB
     Dosage: 400 MG, BID
     Route: 048
  6. TASIGNA [Suspect]
     Active Substance: NILOTINIB
     Dosage: 150 MG, BID (IN THE MORNING AND ONE IN THE EVENING)
     Route: 048
  7. PAXIL [Concomitant]
     Active Substance: PAROXETINE HYDROCHLORIDE
     Indication: PRODUCT USED FOR UNKNOWN INDICATION
     Dosage: 20 MG, QD
     Route: 048
  8. TASIGNA [Suspect]
     Active Substance: NILOTINIB
     Dosage: 150 MG, TID
     Route: 048
  9. TASIGNA [Suspect]
     Active Substance: NILOTINIB
     Dosage: 450 MG (150 MG QAM AND 300 MG QPM )
     Route: 048
  10. TASIGNA [Suspect]
     Active Substance: NILOTINIB
     Indication: CHRONIC MYELOID LEUKAEMIA
     Dosage: 150 MG, QID
     Route: 048
     Dates: start: 201003, end: 20110412
  11. TASIGNA [Suspect]
     Active Substance: NILOTINIB
     Dosage: 300 MG, QD (2 TABLETS OF 150 MG IN THE MORNING)
     Route: 048
     Dates: end: 201611
  12. ACTONEL [Concomitant]
     Active Substance: RISEDRONATE SODIUM
     Indication: PRODUCT USED FOR UNKNOWN INDICATION
     Route: 065
  13. ASA [Concomitant]
     Active Substance: ASPIRIN
     Indication: PRODUCT USED FOR UNKNOWN INDICATION
     Route: 065

REACTIONS (24)
  - Cerebrovascular accident [Recovered/Resolved with Sequelae]
  - Memory impairment [Not Recovered/Not Resolved]
  - Myalgia [Recovered/Resolved]
  - Infection [Recovering/Resolving]
  - Movement disorder [Recovered/Resolved]
  - Visual acuity reduced [Recovered/Resolved with Sequelae]
  - Cerebrovascular accident [Unknown]
  - Insomnia [Recovered/Resolved]
  - Dizziness [Recovered/Resolved]
  - Gait disturbance [Unknown]
  - Pain in extremity [Recovering/Resolving]
  - Dyspepsia [Unknown]
  - Hypertension [Unknown]
  - Cerebral artery thrombosis [Unknown]
  - Muscle spasms [Recovered/Resolved]
  - Headache [Unknown]
  - Urticaria [Recovering/Resolving]
  - Dementia [Unknown]
  - Ischaemic stroke [Unknown]
  - Speech disorder [Unknown]
  - Pruritus [Unknown]
  - Vision blurred [Unknown]
  - Confusional state [Recovered/Resolved with Sequelae]
  - Skin lesion [Unknown]

NARRATIVE: CASE EVENT DATE: 201410
